FAERS Safety Report 12870366 (Version 3)
Quarter: 2018Q1

REPORT INFORMATION
  Report Type: Report from Study
  Country: US (occurrence: US)
  Receive Date: 20161020
  Receipt Date: 20180105
  Transmission Date: 20180508
  Serious: No
  Sender: FDA-Public Use
  Company Number: US-AMGEN-USASL2016116056

PATIENT
  Age: 68 Year
  Sex: Male
  Weight: 78.5 kg

DRUGS (6)
  1. CARVEDILOL. [Concomitant]
     Active Substance: CARVEDILOL
     Dosage: UNK
  2. FLOREX [Concomitant]
     Dosage: UNK
  3. REPATHA [Suspect]
     Active Substance: EVOLOCUMAB
     Indication: BLOOD CHOLESTEROL INCREASED
     Dosage: UNK, Q2WK
     Route: 065
  4. REPATHA [Suspect]
     Active Substance: EVOLOCUMAB
     Indication: HYPERLIPIDAEMIA
     Dosage: 140 MG, QMO
     Route: 065
     Dates: start: 201606
  5. CELEBREX [Concomitant]
     Active Substance: CELECOXIB
     Dosage: UNK
  6. FOSINOPRIL [Concomitant]
     Active Substance: FOSINOPRIL
     Dosage: UNK

REACTIONS (4)
  - Rash [Unknown]
  - Genital rash [Unknown]
  - Fungal infection [Unknown]
  - Eyelid rash [Unknown]
